FAERS Safety Report 14769335 (Version 1)
Quarter: 2018Q2

REPORT INFORMATION
  Report Type: Spontaneous
  Country: CA (occurrence: CA)
  Receive Date: 20180417
  Receipt Date: 20180417
  Transmission Date: 20180711
  Serious: Yes (Hospitalization)
  Sender: FDA-Public Use
  Company Number: CA-TARO PHARMACEUTICALS USA.,INC-2018SUN00200

PATIENT
  Age: 20 Year
  Sex: Male

DRUGS (1)
  1. TARO-BENZOYL PEROXIDE/CLINDAMYCIN KIT [Suspect]
     Active Substance: BENZOYL PEROXIDE\CLINDAMYCIN
     Indication: ACNE
     Dosage: UNK, OD
     Route: 061
     Dates: start: 20180306

REACTIONS (1)
  - Seizure [Unknown]

NARRATIVE: CASE EVENT DATE: 20180313
